FAERS Safety Report 7436237-7 (Version None)
Quarter: 2011Q2

REPORT INFORMATION
  Report Type: 
  Country: None (occurrence: None)
  Receive Date: 20110425
  Receipt Date: 20101202
  Transmission Date: 20111010
  Serious: Yes (Other)
  Sender: FDA-Public Use
  Company Number: US-BAYER-201041728NA

PATIENT
  Age: 81 Year
  Sex: Male

DRUGS (7)
  1. SIMVASTATIN [Concomitant]
  2. VITAMINS NOS [Concomitant]
  3. AVELOX [Suspect]
     Indication: BRONCHITIS
     Dosage: 400 MG, QD
     Route: 048
     Dates: start: 20101111, end: 20101112
  4. DILTIAZEM [Concomitant]
  5. SERTRALINE [Concomitant]
  6. GLYBURIDE [Concomitant]
  7. METOPROLOL [Concomitant]

REACTIONS (6)
  - OEDEMA MOUTH [None]
  - HYPERSENSITIVITY [None]
  - OROPHARYNGEAL BLISTERING [None]
  - BLISTER [None]
  - APHAGIA [None]
  - ORAL PAIN [None]
